FAERS Safety Report 5397914-5 (Version None)
Quarter: 2007Q3

REPORT INFORMATION
  Report Type: 
  Country: None (occurrence: None)
  Receive Date: 20070726
  Receipt Date: 20070720
  Transmission Date: 20080115
  Serious: Yes (Other)
  Sender: FDA-Public Use
  Company Number: AU-ASTRAZENECA-2007AP04399

PATIENT
  Sex: Female

DRUGS (4)
  1. SEROQUEL [Suspect]
     Indication: BIPOLAR DISORDER
     Route: 048
  2. SEROQUEL [Suspect]
     Route: 048
  3. ZUCLOPENTHIXOL [Concomitant]
  4. ZUCLOPENTHIXOL [Concomitant]

REACTIONS (3)
  - DIABETES MELLITUS [None]
  - OVERDOSE [None]
  - WEIGHT INCREASED [None]
